FAERS Safety Report 19125642 (Version 1)
Quarter: 2021Q2

REPORT INFORMATION
  Report Type: Spontaneous
  Country: US (occurrence: US)
  Receive Date: 20210412
  Receipt Date: 20210412
  Transmission Date: 20210717
  Serious: Yes (Hospitalization)
  Sender: FDA-Public Use
  Company Number: None

PATIENT
  Age: 74 Year
  Sex: Male
  Weight: 98.55 kg

DRUGS (2)
  1. BAMLANIVIMAB AND [Suspect]
     Active Substance: BAMLANIVIMAB
     Indication: COVID-19
     Dosage: ?          OTHER FREQUENCY:1 TIME;?
     Route: 042
     Dates: start: 20210409, end: 20210409
  2. ETESEVIMAB. [Suspect]
     Active Substance: ETESEVIMAB
     Indication: COVID-19
     Dosage: ?          OTHER FREQUENCY:1 TIME;?
     Route: 042
     Dates: start: 20210409, end: 20210409

REACTIONS (4)
  - Pulmonary oedema [None]
  - COVID-19 [None]
  - Anaphylactic reaction [None]
  - Respiratory failure [None]

NARRATIVE: CASE EVENT DATE: 20210409
